FAERS Safety Report 8031017-6 (Version None)
Quarter: 2012Q1

REPORT INFORMATION
  Report Type: 
  Country: None (occurrence: None)
  Receive Date: 20120109
  Receipt Date: 20120104
  Transmission Date: 20120608
  Serious: Yes (Other)
  Sender: FDA-Public Use
  Company Number: PHHY2012BR001220

PATIENT
  Age: 75 Year
  Sex: Female

DRUGS (1)
  1. TEKTURNA [Suspect]
     Dosage: 300 MG, UNK

REACTIONS (2)
  - BLOOD PRESSURE INCREASED [None]
  - PARKINSON'S DISEASE [None]
